FAERS Safety Report 17190385 (Version 1)
Quarter: 2019Q4

REPORT INFORMATION
  Report Type: Spontaneous
  Country: US (occurrence: US)
  Receive Date: 20191223
  Receipt Date: 20191223
  Transmission Date: 20200122
  Serious: Yes (Other)
  Sender: FDA-Public Use
  Company Number: US-ACCORD-166908

PATIENT
  Age: 7 Year
  Sex: Male

DRUGS (6)
  1. CARBOPLATIN. [Suspect]
     Active Substance: CARBOPLATIN
     Indication: RHABDOID TUMOUR
     Dosage: GIVEN ON DAY 1 (21-DAY 4 CYCLES)?5 AREA UNDER THE CURVE
  2. ATEZOLIZUMAB. [Suspect]
     Active Substance: ATEZOLIZUMAB
     Indication: RHABDOID TUMOUR
     Dosage: GIVEN ON FIRST DAY OF EACH CYCLE
  3. ETOPOSIDE PHOSPHATE [Suspect]
     Active Substance: ETOPOSIDE PHOSPHATE
     Indication: PANCREATIC CARCINOMA
     Dosage: GIVEN ON DAYS 1-3 (21-DAY 4 CYCLES)
  4. ETOPOSIDE. [Suspect]
     Active Substance: ETOPOSIDE
     Indication: RHABDOID TUMOUR
     Dosage: GIVEN ON DAYS 1-3 (21-DAY 4 CYCLES)
  5. ATEZOLIZUMAB. [Suspect]
     Active Substance: ATEZOLIZUMAB
     Indication: PANCREATIC CARCINOMA
     Dosage: GIVEN ON FIRST DAY OF EACH CYCLE
  6. CARBOPLATIN. [Suspect]
     Active Substance: CARBOPLATIN
     Indication: PANCREATIC CARCINOMA
     Dosage: GIVEN ON DAY 1 (21-DAY 4 CYCLES)?5 AREA UNDER THE CURVE

REACTIONS (3)
  - Bone marrow failure [Unknown]
  - Electrolyte imbalance [Unknown]
  - Off label use [Unknown]
